FAERS Safety Report 9216795 (Version 1)
Quarter: 2013Q2

REPORT INFORMATION
  Report Type: Spontaneous
  Country: US (occurrence: US)
  Receive Date: 20130408
  Receipt Date: 20130408
  Transmission Date: 20140414
  Serious: No
  Sender: FDA-Public Use
  Company Number: US-PFIZER INC-2013109610

PATIENT
  Age: 65 Year
  Sex: Male
  Weight: 130 kg

DRUGS (7)
  1. LYRICA [Suspect]
     Indication: NEURALGIA
     Dosage: 75 MG, 1X/DAY
     Route: 048
  2. LYRICA [Suspect]
     Dosage: 75 MG, 2X/DAY
     Route: 048
  3. LYRICA [Suspect]
     Dosage: UNK
     Route: 048
  4. NORCO [Concomitant]
     Indication: NECK PAIN
     Dosage: 10 MG, EVERY 4 HRS
     Route: 048
  5. NORCO [Concomitant]
     Indication: BACK PAIN
  6. FLECTOR PATCH [Concomitant]
     Indication: NECK PAIN
     Dosage: UNK
  7. FLECTOR PATCH [Concomitant]
     Indication: BACK PAIN

REACTIONS (11)
  - Oedema peripheral [Unknown]
  - Hypersomnia [Unknown]
  - Dizziness [Unknown]
  - Rash [Unknown]
  - Urticaria [Unknown]
  - Dry mouth [Unknown]
  - Weight increased [Unknown]
  - Disturbance in attention [Unknown]
  - Arthropathy [Recovered/Resolved]
  - Limb discomfort [Recovered/Resolved]
  - Anger [Unknown]
